FAERS Safety Report 19211921 (Version 1)
Quarter: 2021Q2

REPORT INFORMATION
  Report Type: Report from Study
  Country: BR (occurrence: BR)
  Receive Date: 20210504
  Receipt Date: 20210504
  Transmission Date: 20210717
  Serious: Yes (Other)
  Sender: FDA-Public Use
  Company Number: BR-TAKEDA-2021TUS001870

PATIENT
  Age: 47 Year
  Sex: Female
  Weight: 62 kg

DRUGS (1)
  1. HUMAN IMMUNOGLOBULIN; HYALURONIDASE [Suspect]
     Active Substance: HUMAN IMMUNOGLOBULIN G\HYALURONIDASE RECOMBINANT HUMAN
     Indication: PRIMARY IMMUNODEFICIENCY SYNDROME
     Dosage: 250 MILLILITER, Q4WEEKS
     Route: 058
     Dates: start: 20201207, end: 202103

REACTIONS (9)
  - Hypersensitivity [Recovered/Resolved]
  - Pruritus [Recovered/Resolved]
  - Malaise [Unknown]
  - Nausea [Recovered/Resolved]
  - Autoimmune disorder [Unknown]
  - Abdominal pain [Recovered/Resolved]
  - Product dose omission issue [Unknown]
  - Pyrexia [Recovered/Resolved]
  - Exposure during pregnancy [Unknown]

NARRATIVE: CASE EVENT DATE: 20201207
